FAERS Safety Report 5510692-1 (Version None)
Quarter: 2007Q4

REPORT INFORMATION
  Report Type: 
  Country: None (occurrence: None)
  Receive Date: 20071107
  Receipt Date: 20071024
  Transmission Date: 20080405
  Serious: Yes (Hospitalization)
  Sender: FDA-Public Use
  Company Number: CHPA2007US11151

PATIENT
  Age: 41 Year
  Sex: Male

DRUGS (2)
  1. IBUPROFEN [Suspect]
     Dosage: 400 MG, Q6H FOR 3 OR 4 DOSES, ORAL
     Route: 048
  2. ACETAMINOPHEN, DEXTROMETHORPHAN, PSEUDOEPHEDRINE [Suspect]
     Dosage: ONCE/SINGLE

REACTIONS (34)
  - ABDOMINAL DISTENSION [None]
  - ABDOMINAL PAIN UPPER [None]
  - ABDOMINAL TENDERNESS [None]
  - ANAEMIA [None]
  - ANOREXIA [None]
  - ASCITES [None]
  - ASTHENIA [None]
  - BLOOD FIBRINOGEN INCREASED [None]
  - CARDIAC MURMUR [None]
  - DEHYDRATION [None]
  - DIARRHOEA [None]
  - FAECES PALE [None]
  - FATIGUE [None]
  - FLUID INTAKE REDUCED [None]
  - GASTROENTERITIS [None]
  - GLOMERULONEPHRITIS [None]
  - GLOMERULONEPHRITIS MINIMAL LESION [None]
  - HEADACHE [None]
  - HICCUPS [None]
  - ILEUS [None]
  - INSOMNIA [None]
  - MYALGIA [None]
  - NAUSEA [None]
  - ORAL INTAKE REDUCED [None]
  - PLATELET COUNT DECREASED [None]
  - PLEURAL FIBROSIS [None]
  - RECTAL HAEMORRHAGE [None]
  - RENAL TUBULAR NECROSIS [None]
  - RENAL VESSEL DISORDER [None]
  - ROULEAUX FORMATION [None]
  - THIRST [None]
  - THROMBOCYTOPENIA [None]
  - THROMBOTIC MICROANGIOPATHY [None]
  - VOMITING [None]
